FAERS Safety Report 4385112-3 (Version None)
Quarter: 2004Q2

REPORT INFORMATION
  Report Type: 
  Country: None (occurrence: None)
  Receive Date: 20040621
  Receipt Date: 20040604
  Transmission Date: 20050107
  Serious: Yes (Other)
  Sender: FDA-Public Use
  Company Number: 2004-BP-04256NB

PATIENT
  Age: 90 Year
  Sex: Female

DRUGS (12)
  1. MICARDIS [Suspect]
     Indication: HYPERTENSION
     Dosage: 40 MG ; PO
     Route: 048
     Dates: start: 20040416, end: 20040507
  2. DIGOXIN (DIGOXIN) (TA) [Concomitant]
  3. LASIX (TA) [Concomitant]
  4. ASPIRIN [Concomitant]
  5. ADALAT [Concomitant]
  6. BASEN (VOGLIBOSE) (TA) [Concomitant]
  7. MARZULENE S (MARZULENE S)(GR) [Concomitant]
  8. CRIPTAN (AMV) [Concomitant]
  9. MILLIS (TTS) [Concomitant]
  10. ARTIST (CARVEDILOL ) (TA) [Concomitant]
  11. GRAMALIL (TIAPRIDE HYDROCHLORIEDE) (TA) [Concomitant]
  12. ACECOL (TEMOCAPRIL HYDROCHLORIDE) (TA) [Concomitant]

REACTIONS (4)
  - ANOREXIA [None]
  - CARDIOACTIVE DRUG LEVEL INCREASED [None]
  - DRUG TOXICITY [None]
  - FATIGUE [None]
